FAERS Safety Report 18572472 (Version 4)
Quarter: 2021Q1

REPORT INFORMATION
  Report Type: Spontaneous
  Country: JP (occurrence: JP)
  Receive Date: 20201202
  Receipt Date: 20210114
  Transmission Date: 20210419
  Serious: Yes (Hospitalization, Other)
  Sender: FDA-Public Use
  Company Number: JP-ASTRAZENECA-2020SF58024

PATIENT
  Age: 71 Year
  Sex: Male
  Weight: 52 kg

DRUGS (5)
  1. OTC COMMERCIALLY AVAILABLE ENEMA [Concomitant]
     Dosage: UNKNOWN DOSE AND FREQUENCY
     Route: 065
  2. SENNOSIDE [Concomitant]
     Active Substance: SENNOSIDES
     Dosage: UNKNOWN DOSE AND FREQUENCY
     Route: 065
  3. MAGNESIUM OXIDE. [Concomitant]
     Active Substance: MAGNESIUM OXIDE
     Dosage: UNKNOWN DOSE AND FREQUENCY
     Route: 065
  4. NEXIUM [Suspect]
     Active Substance: ESOMEPRAZOLE MAGNESIUM
     Indication: GASTROOESOPHAGEAL REFLUX DISEASE
     Route: 048
  5. BENIDIPINE HYDROCHLORIDE [Concomitant]
     Active Substance: BENIDIPINE HYDROCHLORIDE
     Dosage: UNKNOWN DOSE AND FREQUENCY
     Route: 065

REACTIONS (3)
  - Pancreatic cyst rupture [Unknown]
  - Peritonitis [Unknown]
  - Intraductal papillary-mucinous carcinoma of pancreas [Unknown]
